FAERS Safety Report 5782712-0 (Version None)
Quarter: 2008Q2

REPORT INFORMATION
  Report Type: 
  Country: None (occurrence: None)
  Receive Date: 20080619
  Receipt Date: 20080619
  Transmission Date: 20081010
  Serious: No
  Sender: FDA-Public Use
  Company Number: None

PATIENT
  Sex: Female
  Weight: 55.3388 kg

DRUGS (17)
  1. PLAVIX [Suspect]
     Dosage: 1 PER DAY
  2. COLCHICINE [Concomitant]
  3. OXYBUTYNIN CHLORIDE [Concomitant]
  4. LEVOTHROID [Concomitant]
  5. LISINOPRIL [Concomitant]
  6. ASPIRIN [Concomitant]
  7. BETA CAROTENE [Concomitant]
  8. GARLIC [Concomitant]
  9. ZINC [Concomitant]
  10. CHROMIUM [Concomitant]
  11. CALCIUM + D [Concomitant]
  12. MAGNESIUM [Concomitant]
  13. C-500 [Concomitant]
  14. B-100 [Concomitant]
  15. FISH OIL [Concomitant]
  16. FLAXSEED OILS [Concomitant]
  17. LEICINE [Concomitant]

REACTIONS (4)
  - CONTUSION [None]
  - MUSCULAR WEAKNESS [None]
  - OVERDOSE [None]
  - WHEELCHAIR USER [None]
